FAERS Safety Report 8060930-9 (Version None)
Quarter: 2012Q1

REPORT INFORMATION
  Report Type: 
  Country: None (occurrence: None)
  Receive Date: 20120120
  Receipt Date: 20110330
  Transmission Date: 20120608
  Serious: No
  Sender: FDA-Public Use
  Company Number: US-ALLERGAN-1104511US

PATIENT
  Sex: Male

DRUGS (4)
  1. LOTEMAX [Concomitant]
  2. ALREX                              /00595201/ [Concomitant]
  3. RESTASIS [Suspect]
     Indication: PRODUCT USED FOR UNKNOWN INDICATION
     Dosage: UNK
     Dates: start: 20101215
  4. AZASITE [Concomitant]

REACTIONS (1)
  - DRUG INEFFECTIVE [None]
